FAERS Safety Report 6552749-2 (Version None)
Quarter: 2010Q1

REPORT INFORMATION
  Report Type: 
  Country: None (occurrence: None)
  Receive Date: 20100126
  Receipt Date: 20100114
  Transmission Date: 20100710
  Serious: Yes (Hospitalization)
  Sender: FDA-Public Use
  Company Number: PHHY2009MX46398

PATIENT
  Age: 77 Year
  Sex: Female

DRUGS (1)
  1. DIOVAN HCT [Suspect]
     Indication: HYPERTENSION
     Dosage: ONE TABLET (160/12.5MG) PER DAY
     Route: 048
     Dates: start: 19990601, end: 20090923

REACTIONS (4)
  - ANGIOPLASTY [None]
  - ARRHYTHMIA [None]
  - CARDIOMEGALY [None]
  - MYOCARDIAL INFARCTION [None]
